FAERS Safety Report 10945010 (Version 1)
Quarter: 2015Q1

REPORT INFORMATION
  Report Type: Report from Study
  Country: US (occurrence: US)
  Receive Date: 20150323
  Receipt Date: 20150323
  Transmission Date: 20150721
  Serious: Yes (Hospitalization, Other)
  Sender: FDA-Public Use
  Company Number: US-ROCHE-1554760

PATIENT
  Sex: Male

DRUGS (1)
  1. NUTROPIN AQ [Suspect]
     Active Substance: SOMATROPIN
     Indication: CHRONIC KIDNEY DISEASE
     Dosage: NUTROPIN AQ NUSPIN 5 MG PEN
     Route: 058
     Dates: start: 20150112

REACTIONS (2)
  - Hernia repair [Recovering/Resolving]
  - Gastrointestinal tube insertion [Recovering/Resolving]
